FAERS Safety Report 7467338-5 (Version None)
Quarter: 2011Q2

REPORT INFORMATION
  Report Type: 
  Country: None (occurrence: None)
  Receive Date: 20110509
  Receipt Date: 20110405
  Transmission Date: 20111010
  Serious: No
  Sender: FDA-Public Use
  Company Number: US-SANOFI-AVENTIS-2011SA020889

PATIENT
  Age: 59 Year
  Sex: Male

DRUGS (3)
  1. APIDRA [Suspect]
     Indication: DIABETES MELLITUS
     Dosage: PRODUCT START DATE: FEW YEARS AGO
     Route: 058
  2. OPTICLICK [Suspect]
     Indication: DIABETES MELLITUS
     Dosage: TAKEN FROM: FEW YEARS AGO
  3. LANTUS [Suspect]
     Indication: DIABETES MELLITUS
     Dosage: TAKEN FROM: FEW YEARS AGO DOSE:55 UNIT(S)
     Route: 058

REACTIONS (1)
  - ARTHRITIS [None]
